FAERS Safety Report 18133359 (Version 2)
Quarter: 2021Q1

REPORT INFORMATION
  Report Type: Report from Study
  Country: IL (occurrence: IL)
  Receive Date: 20200811
  Receipt Date: 20210112
  Transmission Date: 20210419
  Serious: Yes (Hospitalization, Other)
  Sender: FDA-Public Use
  Company Number: IL-TAKEDA-2020TUS034000

PATIENT
  Age: 68 Year
  Sex: Male

DRUGS (1)
  1. VEDOLIZUMAB [Suspect]
     Active Substance: VEDOLIZUMAB
     Indication: CROHN^S DISEASE
     Dosage: 300 MILLIGRAM
     Route: 042
     Dates: start: 20180716

REACTIONS (4)
  - Inguinal hernia [Recovered/Resolved]
  - Malaise [Not Recovered/Not Resolved]
  - Procedural pain [Not Recovered/Not Resolved]
  - Groin pain [Recovering/Resolving]

NARRATIVE: CASE EVENT DATE: 20210105
